FAERS Safety Report 8474784 (Version 4)
Quarter: 2012Q4

REPORT INFORMATION
  Report Type: 
  Country: US (occurrence: US)
  Receive Date: 20120323
  Receipt Date: 20121115
  Transmission Date: 20130627
  Serious: Yes (Hospitalization, Other)
  Sender: FDA-Public Use
  Company Number: US-ACTELION-A-US2011-47828

PATIENT
  Age: 75 Year
  Sex: Female

DRUGS (1)
  1. TRACLEER [Suspect]
     Indication: PULMONARY ARTERIAL HYPERTENSION
     Dosage: UNK
     Route: 048
     Dates: start: 20110331

REACTIONS (10)
  - Knee arthroplasty [Unknown]
  - Dyspnoea [Unknown]
  - Arthritis infective [Recovered/Resolved]
  - Hepatic steatosis [Unknown]
  - Gait disturbance [Unknown]
  - Panic attack [Unknown]
  - Pain [Unknown]
  - Fatigue [Unknown]
  - Chest pain [Unknown]
  - Post procedural infection [Recovered/Resolved]
